FAERS Safety Report 17477574 (Version 1)
Quarter: 2020Q1

REPORT INFORMATION
  Report Type: Spontaneous
  Country: CZ (occurrence: CZ)
  Receive Date: 20200228
  Receipt Date: 20200228
  Transmission Date: 20200409
  Serious: Yes (Other)
  Sender: FDA-Public Use
  Company Number: CZ-MYLANLABS-2020M1021315

PATIENT
  Sex: Male

DRUGS (4)
  1. OXALIPLATIN. [Suspect]
     Active Substance: OXALIPLATIN
     Indication: RECTOSIGMOID CANCER
     Dosage: UNK UNK, CYCLE
     Dates: end: 201801
  2. FOLINIC ACID [Suspect]
     Active Substance: LEUCOVORIN
     Indication: RECTOSIGMOID CANCER
     Dosage: UNK UNK, CYCLE
     Dates: end: 201801
  3. CETUXIMAB. [Suspect]
     Active Substance: CETUXIMAB
     Indication: RECTOSIGMOID CANCER
     Dosage: UNK UNK, CYCLE
     Dates: end: 201801
  4. FLUOROURACIL. [Suspect]
     Active Substance: FLUOROURACIL
     Indication: RECTOSIGMOID CANCER
     Dosage: UNK UNK, CYCLE
     Dates: end: 201801

REACTIONS (5)
  - Weight decreased [Unknown]
  - Skin toxicity [Unknown]
  - Conjunctivitis [Unknown]
  - Neurotoxicity [Unknown]
  - Decreased appetite [Unknown]
